FAERS Safety Report 4423556-1 (Version None)
Quarter: 2004Q3

REPORT INFORMATION
  Report Type: 
  Country: None (occurrence: None)
  Receive Date: 20040714
  Receipt Date: 20040428
  Transmission Date: 20050211
  Serious: Yes (Hospitalization)
  Sender: FDA-Public Use
  Company Number: 200412854US

PATIENT
  Age: 52 Year
  Sex: Male
  Weight: 100 kg

DRUGS (3)
  1. TAXOTERE [Suspect]
     Indication: CARCINOMA
     Dosage: 165 MG
     Dates: start: 20040304, end: 20040304
  2. TAXOTERE [Suspect]
     Indication: CARCINOMA
     Dosage: 165 MG
     Dates: start: 20040325, end: 20040325
  3. WARFARIN SODIUM [Concomitant]

REACTIONS (3)
  - EYE PAIN [None]
  - HEART RATE INCREASED [None]
  - HEART RATE IRREGULAR [None]
